FAERS Safety Report 18606499 (Version 2)
Quarter: 2021Q1

REPORT INFORMATION
  Report Type: Report from Study
  Country: US (occurrence: US)
  Receive Date: 20201211
  Receipt Date: 20210201
  Transmission Date: 20210419
  Serious: Yes (Other)
  Sender: FDA-Public Use
  Company Number: US-IPSEN BIOPHARMACEUTICALS, INC.-2020-24690

PATIENT
  Age: 64 Year
  Sex: Female
  Weight: 54 kg

DRUGS (7)
  1. DYSPORT [Suspect]
     Active Substance: ABOBOTULINUMTOXINA
     Indication: OFF LABEL USE
  2. PAXIL [Concomitant]
     Active Substance: PAROXETINE HYDROCHLORIDE
     Dosage: DAILY
  3. KLONOPIN [Concomitant]
     Active Substance: CLONAZEPAM
     Dosage: 0.5 BID
  4. DYSPORT [Suspect]
     Active Substance: ABOBOTULINUMTOXINA
     Indication: TORTICOLLIS
  5. BACLOFEN. [Concomitant]
     Active Substance: BACLOFEN
  6. DYSPORT [Suspect]
     Active Substance: ABOBOTULINUMTOXINA
     Indication: IRON DEFICIENCY ANAEMIA
     Dosage: 200 IU
     Route: 030
  7. PLENDIL [Concomitant]
     Active Substance: FELODIPINE

REACTIONS (3)
  - Off label use [Unknown]
  - Pharyngitis streptococcal [Recovered/Resolved]
  - COVID-19 [Recovered/Resolved]
